FAERS Safety Report 8040921-4 (Version None)
Quarter: 2012Q1

REPORT INFORMATION
  Report Type: 
  Country: None (occurrence: None)
  Receive Date: 20120112
  Receipt Date: 20120103
  Transmission Date: 20120608
  Serious: No
  Sender: FDA-Public Use
  Company Number: US-BIOGENIDEC-2012BI000273

PATIENT
  Age: 60 Year
  Sex: Female

DRUGS (3)
  1. AVONEX [Concomitant]
     Indication: MULTIPLE SCLEROSIS
     Route: 030
     Dates: start: 20080418, end: 20111031
  2. TYSABRI [Suspect]
     Route: 042
     Dates: start: 20071206, end: 20080313
  3. TYSABRI [Suspect]
     Indication: MULTIPLE SCLEROSIS
     Route: 042
     Dates: start: 20111116

REACTIONS (2)
  - FALL [None]
  - GAIT DISTURBANCE [None]
